FAERS Safety Report 18287573 (Version 1)
Quarter: 2020Q3

REPORT INFORMATION
  Report Type: Spontaneous
  Country: US (occurrence: US)
  Receive Date: 20200918
  Receipt Date: 20200918
  Transmission Date: 20201103
  Serious: Yes (Death)
  Sender: FDA-Public Use
  Company Number: None

PATIENT
  Age: 65 Year
  Sex: Male
  Weight: 80.4 kg

DRUGS (20)
  1. CEFTRIAXONE 1 GM IV ONCE DAILY [Concomitant]
     Dates: start: 20200811, end: 20200825
  2. ENOXAPARIN 40 MG SQ Q 24HR [Concomitant]
     Dates: start: 20200707, end: 20200802
  3. HEPARIN 5,000 UNITS SQ Q12HR [Concomitant]
     Dates: start: 20200817, end: 20200902
  4. AMIODARONE DRIP, THEN 200 MG PO ONCE DAILY [Concomitant]
     Dates: start: 20200727, end: 20200902
  5. DEXAMETHASONE 6 MG IV ONCE DAILY [Concomitant]
     Dates: start: 20200706, end: 20200723
  6. ATORVASTATIN 20 MG PO ONCE DAILY [Concomitant]
     Dates: start: 20200710, end: 20200809
  7. VITAMIN D3 800 UNITS PO ONCE DAILY [Concomitant]
     Dates: start: 20200719, end: 20200818
  8. LISINOPRIL 10 MG PO ONCE DAILY [Concomitant]
     Dates: start: 20200707, end: 20200803
  9. MEROPENEM IV RENALLY ADJUSTED [Concomitant]
     Dates: start: 20200806, end: 20200902
  10. METHYLPREDNISOLONE 40 MG IV DAILY [Concomitant]
     Dates: start: 20200824, end: 20200902
  11. ASPIRIN 81 MG PO DAILY [Concomitant]
     Dates: start: 20200803, end: 20200902
  12. MELATONIN 9 MG PO HS [Concomitant]
     Dates: start: 20200710, end: 20200721
  13. METOPROLOL TARTRATE 25 MG PO 12.5 MG BID [Concomitant]
     Dates: start: 20200803, end: 20200814
  14. ENOXAPARIN 80 MG SQ Q12HR [Concomitant]
     Dates: start: 20200803, end: 20200814
  15. ZINC SULFATE 220 MG PO BID [Concomitant]
     Dates: start: 20200707, end: 20200723
  16. ASCORBIC ACID 1000 MG PO Q12H [Concomitant]
     Dates: start: 20200707, end: 20200809
  17. REMDESIVIR. [Suspect]
     Active Substance: REMDESIVIR
     Indication: COVID-19 PNEUMONIA
     Route: 042
     Dates: start: 20200707, end: 20200711
  18. MICAFUNGIN 100 MG IV ONCE DAILY [Concomitant]
     Dates: start: 20200719, end: 20200810
  19. PIPERACILLIN/TAZO 3.375 GM IV Q8HR [Concomitant]
     Dates: start: 20200725, end: 20200806
  20. VANCOMYCIN [Concomitant]
     Active Substance: VANCOMYCIN
     Dates: start: 20200713, end: 20200722

REACTIONS (12)
  - Acute respiratory distress syndrome [None]
  - Malnutrition [None]
  - Multiple organ dysfunction syndrome [None]
  - Cardiac arrest [None]
  - Acute kidney injury [None]
  - Anaemia [None]
  - Renal tubular necrosis [None]
  - Hypoxia [None]
  - Sepsis [None]
  - Metabolic disorder [None]
  - Acute respiratory failure [None]
  - Pneumothorax [None]

NARRATIVE: CASE EVENT DATE: 20200902
